FAERS Safety Report 15883133 (Version 6)
Quarter: 2022Q1

REPORT INFORMATION
  Report Type: Report from Study
  Country: US (occurrence: None)
  Receive Date: 20190129
  Receipt Date: 20220118
  Transmission Date: 20220423
  Serious: Yes (Life-Threatening)
  Sender: FDA-Public Use
  Company Number: US-ROCHE-2249762

PATIENT
  Age: 61 Year
  Sex: Female
  Weight: 75.4 kg

DRUGS (7)
  1. ATEZOLIZUMAB [Suspect]
     Active Substance: ATEZOLIZUMAB
     Indication: Ovarian cancer
     Dosage: DATE OF MOST RECENT DOSE OF ATEZOLIZUMAB : 29/NOV/2018 (1600 MG)?ON DAYS 1 AND 15
     Route: 041
     Dates: start: 20181115
  2. ATEZOLIZUMAB [Suspect]
     Active Substance: ATEZOLIZUMAB
     Indication: Malignant peritoneal neoplasm
     Dosage: CYCLE: 28 DAYS; OVER 1 HOUR ON DAYS 1 AND 15
     Route: 041
     Dates: start: 20181017
  3. BEVACIZUMAB [Suspect]
     Active Substance: BEVACIZUMAB
     Indication: Ovarian cancer
     Dosage: DATE OF MOST RECENT DOSE OF BEVACIZUMAB PRIOR TO AE : 29/NOV/2018 (1496 MG)?DAYS 1 AND 15
     Route: 042
     Dates: start: 20181115
  4. BEVACIZUMAB [Suspect]
     Active Substance: BEVACIZUMAB
     Indication: Malignant peritoneal neoplasm
     Dosage: 10 MG/KG INTRAVENOUS OVER 90 MINUTES ON DAYS 1 AND 15
     Route: 042
     Dates: start: 20181017
  5. DOXORUBICIN [Suspect]
     Active Substance: DOXORUBICIN
     Indication: Ovarian cancer
     Dosage: CYCLE 28 DAY;40 MG/M2 IV OVER 1 HOUR ON DAY 1?DATE OF MOST RECENT DOSE OF DOXORUBICIN PRIOR TO SAE :
     Route: 042
     Dates: start: 20181017
  6. DOXORUBICIN [Suspect]
     Active Substance: DOXORUBICIN
     Indication: Malignant peritoneal neoplasm
     Dosage: CYCLE 28 DAY;40 MG/M2 IV OVER 1 HOUR ON DAY 1?DATE OF MOST RECENT DOSE OF DOXORUBICIN PRIOR TO SAE :
     Route: 042
     Dates: start: 20181115
  7. NIRAPARIB TOSYLATE MONOHYDRATE [Suspect]
     Active Substance: NIRAPARIB TOSYLATE MONOHYDRATE
     Indication: Ovarian cancer
     Route: 065
     Dates: start: 201805, end: 201809

REACTIONS (1)
  - Myelodysplastic syndrome [Not Recovered/Not Resolved]

NARRATIVE: CASE EVENT DATE: 20190104
